FAERS Safety Report 9264214 (Version 1)
Quarter: 2013Q2

REPORT INFORMATION
  Report Type: Spontaneous
  Country: ES (occurrence: ES)
  Receive Date: 20130430
  Receipt Date: 20130430
  Transmission Date: 20140414
  Serious: Yes (Hospitalization)
  Sender: FDA-Public Use
  Company Number: ES-B.I. PHARMACEUTICALS,INC./RIDGEFIELD-2013-ES-00204ES

PATIENT
  Age: 82 Year
  Sex: Female

DRUGS (14)
  1. PRADAXA [Suspect]
     Indication: ATRIAL FIBRILLATION
     Dates: start: 20120213
  2. TIOTROPIUM [Concomitant]
     Indication: ASTHMA
  3. MONTELUKAST [Concomitant]
     Indication: ASTHMA
  4. FLUTICASONE [Concomitant]
     Indication: ASTHMA
  5. SALMETEROL [Concomitant]
     Indication: ASTHMA
  6. IBUPROFEN [Concomitant]
     Indication: CHEST PAIN
  7. IBUPROFEN [Concomitant]
     Indication: PERICARDIAL EFFUSION
  8. IBUPROFEN [Concomitant]
     Indication: PERICARDITIS
  9. DIGOXINA [Concomitant]
     Indication: CHEST PAIN
  10. DIGOXINA [Concomitant]
     Indication: PERICARDIAL EFFUSION
  11. DIGOXINA [Concomitant]
     Indication: PERICARDITIS
  12. AMIODARONE [Concomitant]
     Indication: CHEST PAIN
  13. AMIODARONE [Concomitant]
     Indication: PERICARDIAL EFFUSION
  14. AMIODARONE [Concomitant]
     Indication: PERICARDITIS

REACTIONS (2)
  - Haemorrhage [Unknown]
  - Procedural complication [Unknown]
